FAERS Safety Report 21839096 (Version 1)
Quarter: 2023Q1

REPORT INFORMATION
  Report Type: Spontaneous
  Country: US (occurrence: None)
  Receive Date: 20230108
  Receipt Date: 20230108
  Transmission Date: 20230417
  Serious: Yes (unspecified)
  Sender: FDA-Public Use
  Company Number: None

PATIENT
  Age: 72 Year
  Sex: Female
  Weight: 149.69 kg

DRUGS (2)
  1. WARFARIN SODIUM [Suspect]
     Active Substance: WARFARIN SODIUM
     Indication: Pulmonary embolism
     Dates: start: 2020, end: 20200630
  2. WARFARIN SODIUM [Suspect]
     Active Substance: WARFARIN SODIUM
     Indication: Deep vein thrombosis
     Dates: start: 20200805, end: 20220630

REACTIONS (4)
  - Head injury [None]
  - Fall [None]
  - Subdural haemorrhage [None]
  - International normalised ratio increased [None]

NARRATIVE: CASE EVENT DATE: 20220630
